FAERS Safety Report 8243121-8 (Version None)
Quarter: 2012Q1

REPORT INFORMATION
  Report Type: 
  Country: None (occurrence: None)
  Receive Date: 20120314
  Receipt Date: 20100707
  Transmission Date: 20120608
  Serious: Yes (Other)
  Sender: FDA-Public Use
  Company Number: PHHY2010US28589

PATIENT
  Age: 39 Year
  Sex: Male

DRUGS (3)
  1. DEPAKENE [Concomitant]
  2. FANAPT [Suspect]
     Indication: HALLUCINATION, AUDITORY
     Dosage: TITRATION DOSE (STARTER PACK), ORAL
     Route: 048
     Dates: start: 20100323, end: 20100327
  3. EFFEXOR XR [Concomitant]

REACTIONS (2)
  - OEDEMA PERIPHERAL [None]
  - DYSPNOEA [None]
